FAERS Safety Report 9953163 (Version 2)
Quarter: 2014Q1

REPORT INFORMATION
  Report Type: Report from Study
  Country: US (occurrence: US)
  Receive Date: 20140304
  Receipt Date: 20140304
  Transmission Date: 20141002
  Serious: No
  Sender: FDA-Public Use
  Company Number: US-ABBVIE-13P-163-1066443-00

PATIENT
  Age: 63 Year
  Sex: Female

DRUGS (2)
  1. HUMIRA [Suspect]
     Indication: PSORIASIS
     Route: 058
     Dates: start: 201204
  2. HUMIRA [Suspect]
     Dates: start: 20130413

REACTIONS (3)
  - Pneumonia [Recovering/Resolving]
  - Laryngitis [Unknown]
  - Oropharyngeal pain [Unknown]
